FAERS Safety Report 12826482 (Version 1)
Quarter: 2016Q4

REPORT INFORMATION
  Report Type: Spontaneous
  Country: US (occurrence: US)
  Receive Date: 20161007
  Receipt Date: 20161007
  Transmission Date: 20170207
  Serious: No
  Sender: FDA-Public Use
  Company Number: US-INDIVIOR LIMITED-INDV-084920-2015

PATIENT
  Age: 29 Year
  Sex: Female

DRUGS (1)
  1. SUBOXONE [Suspect]
     Active Substance: BUPRENORPHINE HYDROCHLORIDE\NALOXONE HYDROCHLORIDE
     Indication: DRUG DEPENDENCE
     Dosage: 12MG, DAILY FOR 3 WEEKS
     Route: 060
     Dates: start: 201510, end: 20151023

REACTIONS (10)
  - Feeling abnormal [Recovered/Resolved]
  - Asthenopia [Recovered/Resolved]
  - Headache [Recovered/Resolved]
  - Hypoaesthesia [Recovered/Resolved]
  - Urticaria [Recovered/Resolved]
  - Somnolence [Recovered/Resolved]
  - Tension [Recovered/Resolved]
  - Burning sensation [Recovered/Resolved]
  - Vomiting [Recovered/Resolved]
  - Product preparation error [Recovered/Resolved]

NARRATIVE: CASE EVENT DATE: 201510
